FAERS Safety Report 5783122-2 (Version None)
Quarter: 2008Q2

REPORT INFORMATION
  Report Type: 
  Country: None (occurrence: None)
  Receive Date: 20080624
  Receipt Date: 20080612
  Transmission Date: 20081010
  Serious: Yes (Hospitalization)
  Sender: FDA-Public Use
  Company Number: GB-ROCHE-559483

PATIENT
  Sex: Male
  Weight: 81.5 kg

DRUGS (1)
  1. CELLCEPT [Suspect]
     Indication: TRANSPLANT
     Route: 048
     Dates: start: 20050301, end: 20080422

REACTIONS (1)
  - GASTROENTERITIS EOSINOPHILIC [None]
